FAERS Safety Report 13037313 (Version 1)
Quarter: 2016Q4

REPORT INFORMATION
  Report Type: Spontaneous
  Country: US (occurrence: US)
  Receive Date: 20161216
  Receipt Date: 20161216
  Transmission Date: 20170207
  Serious: Yes (Hospitalization, Other)
  Sender: FDA-Public Use
  Company Number: US-GLAXOSMITHKLINE-US2016GSK186819

PATIENT
  Age: 45 Year
  Sex: Female

DRUGS (1)
  1. LAMIVUDINE. [Suspect]
     Active Substance: LAMIVUDINE
     Indication: CHRONIC HEPATITIS B

REACTIONS (17)
  - Carnitine deficiency [Recovered/Resolved]
  - Acute pulmonary oedema [Recovered/Resolved]
  - Lethargy [Recovering/Resolving]
  - Breath sounds abnormal [Recovering/Resolving]
  - Prohormone brain natriuretic peptide increased [Recovering/Resolving]
  - Productive cough [Recovering/Resolving]
  - Pulmonary congestion [Recovering/Resolving]
  - Respiratory failure [Recovering/Resolving]
  - Diastolic dysfunction [Recovering/Resolving]
  - Pneumonia [Recovering/Resolving]
  - Escherichia infection [Recovering/Resolving]
  - Sepsis [Recovering/Resolving]
  - Pulmonary oedema [Recovered/Resolved]
  - Nausea [Recovering/Resolving]
  - Condition aggravated [Recovering/Resolving]
  - Pleuritic pain [Recovering/Resolving]
  - Pathogen resistance [Recovering/Resolving]
